FAERS Safety Report 4801319-2 (Version None)
Quarter: 2005Q4

REPORT INFORMATION
  Report Type: 
  Country: None (occurrence: None)
  Receive Date: 20051012
  Receipt Date: 20050927
  Transmission Date: 20060501
  Serious: Yes (Hospitalization)
  Sender: FDA-Public Use
  Company Number: 2005EU002103

PATIENT
  Age: 67 Year
  Sex: Male

DRUGS (2)
  1. PROGRAF [Suspect]
     Indication: LIVER TRANSPLANT
     Dosage: 1.00 MG, D, ORAL
     Route: 048
     Dates: start: 19990101
  2. ATORVASTATIN CALCIUM [Concomitant]

REACTIONS (4)
  - ADRENAL DISORDER [None]
  - HYPERCORTICOIDISM [None]
  - HYPOTHALAMO-PITUITARY DISORDERS [None]
  - RENAL TUBULAR ACIDOSIS [None]
